FAERS Safety Report 11746198 (Version 1)
Quarter: 2015Q4

REPORT INFORMATION
  Report Type: Spontaneous
  Country: US (occurrence: US)
  Receive Date: 20151117
  Receipt Date: 20151117
  Transmission Date: 20160304
  Serious: Yes (Other)
  Sender: FDA-Public Use
  Company Number: US-JNJFOC-20151106101

PATIENT
  Sex: Female

DRUGS (1)
  1. LISTERINE ORIGINAL [Suspect]
     Active Substance: EUCALYPTOL\MENTHOL\METHYL SALICYLATE\THYMOL
     Indication: DENTAL DISORDER PROPHYLAXIS
     Route: 048
     Dates: start: 2013

REACTIONS (5)
  - Dry mouth [Unknown]
  - Weight decreased [Unknown]
  - Ageusia [Recovering/Resolving]
  - Application site erosion [Unknown]
  - Tongue coated [Unknown]

NARRATIVE: CASE EVENT DATE: 2013
